FAERS Safety Report 5564663-X (Version None)
Quarter: 2007Q4

REPORT INFORMATION
  Report Type: 
  Country: None (occurrence: None)
  Receive Date: 20071218
  Receipt Date: 20071212
  Transmission Date: 20080405
  Serious: Yes (Death)
  Sender: FDA-Public Use
  Company Number: US-ASTRAZENECA-2006UW27575

PATIENT
  Sex: Female

DRUGS (3)
  1. SEROQUEL [Suspect]
     Indication: MENTAL DISORDER
     Route: 048
  2. RISPERDAL [Suspect]
     Route: 048
     Dates: start: 19990124, end: 20050325
  3. ZYPREXA [Suspect]
     Route: 048

REACTIONS (3)
  - CARDIO-RESPIRATORY ARREST [None]
  - CEREBROVASCULAR ACCIDENT [None]
  - DIABETES MELLITUS [None]
